FAERS Safety Report 4292399-4 (Version None)
Quarter: 2004Q1

REPORT INFORMATION
  Report Type: 
  Country: None (occurrence: None)
  Receive Date: 20040126
  Receipt Date: 20030902
  Transmission Date: 20041129
  Serious: No
  Sender: FDA-Public Use
  Company Number: USA030945995

PATIENT
  Age: 70 Year
  Sex: Female
  Weight: 57 kg

DRUGS (8)
  1. FORTEO [Suspect]
     Indication: OSTEOPOROSIS
     Dosage: 20UG/DAY
     Dates: start: 20030601
  2. SYNTHROID [Concomitant]
  3. DEPAKOTE [Concomitant]
     Indication: MIGRAINE
     Dosage: 500MG/DAY
  4. AMERGE [Concomitant]
     Indication: MIGRAINE
  5. CALCIUM [Concomitant]
  6. MULTIVITAMIN [Concomitant]
  7. GARLIC [Concomitant]
  8. GLUCOSAMINE [Concomitant]

REACTIONS (3)
  - CONTUSION [None]
  - INJECTION SITE ERYTHEMA [None]
  - INJECTION SITE HAEMORRHAGE [None]
